FAERS Safety Report 11667670 (Version 1)
Quarter: 2015Q4

REPORT INFORMATION
  Report Type: Spontaneous
  Country: US (occurrence: US)
  Receive Date: 20151027
  Receipt Date: 20151027
  Transmission Date: 20160304
  Serious: No
  Sender: FDA-Public Use
  Company Number: US-ELI_LILLY_AND_COMPANY-US201002000291

PATIENT
  Sex: Female

DRUGS (20)
  1. FORTEO [Suspect]
     Active Substance: TERIPARATIDE
     Indication: OSTEOPOROSIS
     Dosage: 20 UG, DAILY (1/D)
     Route: 065
     Dates: start: 20090424
  2. OMEGA 3 [Concomitant]
     Active Substance: OMEGA-3 FATTY ACIDS
     Dosage: 1000 MG, DAILY (1/D)
  3. VITAMIN D3 [Concomitant]
     Active Substance: CHOLECALCIFEROL
     Dosage: 5000 IU, DAILY (1/D)
  4. ONE-A-DAY [Concomitant]
     Dosage: UNK, DAILY (1/D)
  5. SOTALOL. [Concomitant]
     Active Substance: SOTALOL
     Indication: CARDIAC FIBRILLATION
     Dosage: 40 MG, 2/D
  6. SYNTHROID [Concomitant]
     Active Substance: LEVOTHYROXINE SODIUM
     Dosage: 0.112 MG, DAILY (1/D)
  7. WARFARIN [Concomitant]
     Active Substance: WARFARIN
     Dosage: 5 MG, AS NEEDED
  8. COLCHICINE. [Concomitant]
     Active Substance: COLCHICINE
     Dosage: UNK, 2/D
  9. ASPIRIN. [Concomitant]
     Active Substance: ASPIRIN
     Dosage: 81 MG, DAILY (1/D)
  10. OSCAL 500-D [Concomitant]
     Dosage: UNK, DAILY (1/D)
  11. OMEPRAZOLE. [Concomitant]
     Active Substance: OMEPRAZOLE
     Dosage: 20 MG, DAILY (1/D)
  12. TOPRAL [Concomitant]
     Active Substance: SULTOPRIDE HYDROCHLORIDE
  13. ACTOS /01460201/ [Concomitant]
     Dosage: 45 MG, DAILY (1/D)
  14. GABAPENTIN. [Concomitant]
     Active Substance: GABAPENTIN
     Dosage: 600 MG, 3/D
  15. VITAMIN B COMPLEX [Concomitant]
     Active Substance: CYANOCOBALAMIN\DEXPANTHENOL\NIACINAMIDE\PYRIDOXINE HYDROCHLORIDE\RIBOFLAVIN 5^-PHOSPHATE SODIUM\THIAMINE HYDROCHLORIDE\VITAMIN B COMPLEX
     Dosage: UNK, DAILY (1/D)
  16. ANTIVERT [Concomitant]
     Active Substance: MECLIZINE HYDROCHLORIDE
     Indication: DIZZINESS
     Dosage: 15 MG, AS NEEDED
  17. LISINOPRIL. [Concomitant]
     Active Substance: LISINOPRIL
     Dosage: 5 MG, DAILY (1/D)
  18. FORTEO [Suspect]
     Active Substance: TERIPARATIDE
     Dosage: 20 UG, DAILY (1/D)
     Route: 065
  19. ZETIA [Concomitant]
     Active Substance: EZETIMIBE
     Dosage: 10 MG, DAILY (1/D)
  20. OSTEO BI-FLEX [Concomitant]
     Active Substance: CHONDROITIN SULFATE A\GLUCOSAMINE
     Dosage: UNK, DAILY (1/D)

REACTIONS (3)
  - Fatigue [Recovered/Resolved]
  - Cardiac fibrillation [Unknown]
  - Arthralgia [Not Recovered/Not Resolved]
